FAERS Safety Report 5126961-3 (Version None)
Quarter: 2006Q4

REPORT INFORMATION
  Report Type: 
  Country: None (occurrence: None)
  Receive Date: 20061013
  Receipt Date: 20060925
  Transmission Date: 20070319
  Serious: Yes (Hospitalization)
  Sender: FDA-Public Use
  Company Number: US-ROCHE-464988

PATIENT
  Age: 58 Year
  Sex: Female
  Weight: 85.7 kg

DRUGS (10)
  1. ROCALTROL [Suspect]
     Route: 048
     Dates: start: 20010615
  2. LEXAPRO [Concomitant]
     Route: 048
  3. XANAX [Concomitant]
     Route: 048
  4. LAMICTAL [Concomitant]
  5. TAMOXIFEN CITRATE [Concomitant]
     Indication: BREAST CANCER
     Route: 048
  6. METFORMIN HCL [Concomitant]
     Route: 048
  7. SYNTHROID [Concomitant]
     Indication: THYROID DISORDER
     Route: 048
  8. VOLTAREN [Concomitant]
     Dosage: 10/40 DAILY
     Route: 048
  9. OSCAL [Concomitant]
     Route: 048
  10. PROTONIX [Concomitant]

REACTIONS (1)
  - BLOOD CALCIUM DECREASED [None]
